FAERS Safety Report 12881040 (Version 1)
Quarter: 2016Q4

REPORT INFORMATION
  Report Type: Spontaneous
  Country: US (occurrence: US)
  Receive Date: 20161025
  Receipt Date: 20161025
  Transmission Date: 20170207
  Serious: Yes (Hospitalization)
  Sender: FDA-Public Use
  Company Number: None

PATIENT
  Age: 24 Year
  Sex: Male

DRUGS (10)
  1. DOCUSATE [Concomitant]
     Active Substance: DOCUSATE
  2. PCN [Suspect]
     Active Substance: PENICILLIN
     Indication: ARTHRITIS BACTERIAL
     Dosage: PCN 2.4 MILLION UNITS - IM - FREQUENCY - ILLEGIBLE - DATES OF USE - RECENT
     Route: 030
  3. VANCOMYCIN [Suspect]
     Active Substance: VANCOMYCIN
     Indication: ARTHRITIS BACTERIAL
     Dosage: VANCOMYCIN - 1,000MG IN NS 250ML BAG - INTRAVENOUS - FREQUENCY - ILLEGIBLE - DATES OF USE - RECENT
     Route: 042
  4. APA [Concomitant]
  5. FLEXERIL [Concomitant]
     Active Substance: CYCLOBENZAPRINE HYDROCHLORIDE
  6. OXYCONTIN [Concomitant]
     Active Substance: OXYCODONE HYDROCHLORIDE
  7. ACTIVASE [Concomitant]
     Active Substance: ALTEPLASE
  8. APAP [Concomitant]
     Active Substance: ACETAMINOPHEN
  9. HYDROCORTISONE. [Concomitant]
     Active Substance: HYDROCORTISONE
  10. HYDROMORPHONE [Concomitant]
     Active Substance: HYDROMORPHONE

REACTIONS (3)
  - Tubulointerstitial nephritis [None]
  - Rhabdomyolysis [None]
  - Acute kidney injury [None]

NARRATIVE: CASE EVENT DATE: 20150216
